FAERS Safety Report 10235738 (Version 1)
Quarter: 2014Q2

REPORT INFORMATION
  Report Type: Spontaneous
  Country: ES (occurrence: None)
  Receive Date: 20140611
  Receipt Date: 20140611
  Transmission Date: 20141212
  Serious: Yes (Other)
  Sender: FDA-Public Use
  Company Number: AE-SPE-2014-020

PATIENT
  Age: 79 Year
  Sex: Male

DRUGS (2)
  1. MEIACT MS [Suspect]
     Indication: PNEUMONIA
     Route: 048
     Dates: start: 20140508, end: 20140509
  2. CLARITHROMYCIN [Suspect]
     Route: 048
     Dates: start: 20140508, end: 20140513

REACTIONS (1)
  - Hiccups [None]
